FAERS Safety Report 10974150 (Version 1)
Quarter: 2015Q1

REPORT INFORMATION
  Report Type: Spontaneous
  Country: TN (occurrence: None)
  Receive Date: 20150327
  Receipt Date: 20150327
  Transmission Date: 20150721
  Serious: Yes (Life-Threatening)
  Sender: FDA-Public Use
  Company Number: 2015-00033C

PATIENT
  Age: 16 Year
  Sex: Male

DRUGS (1)
  1. DOXYCYCLINE HYCLATE. [Suspect]
     Active Substance: DOXYCYCLINE HYCLATE
     Indication: ACNE
     Dates: start: 201212, end: 2013

REACTIONS (3)
  - Bone marrow failure [None]
  - Bone marrow transplant [None]
  - Ecchymosis [None]

NARRATIVE: CASE EVENT DATE: 201305
